FAERS Safety Report 5081887-9 (Version None)
Quarter: 2006Q3

REPORT INFORMATION
  Report Type: 
  Country: None (occurrence: None)
  Receive Date: 20060816
  Receipt Date: 20060804
  Transmission Date: 20061208
  Serious: Yes (Death, Hospitalization, Other)
  Sender: FDA-Public Use
  Company Number: CH-BRISTOL-MYERS SQUIBB COMPANY-13471578

PATIENT
  Age: 70 Year
  Sex: Female

DRUGS (5)
  1. GLUCOPHAGE [Suspect]
     Route: 048
     Dates: end: 20060623
  2. AUGMENTIN [Suspect]
     Route: 048
     Dates: start: 20060601, end: 20060601
  3. CIPROFLOXACIN [Concomitant]
     Route: 048
     Dates: start: 20060601, end: 20060623
  4. ZESTORETIC [Concomitant]
     Route: 048
  5. MARCOUMAR [Concomitant]
     Route: 048

REACTIONS (9)
  - CHRONIC OBSTRUCTIVE PULMONARY DISEASE [None]
  - DIARRHOEA [None]
  - DYSPNOEA [None]
  - HEPATORENAL SYNDROME [None]
  - HYPOTONIA [None]
  - INTERNATIONAL NORMALISED RATIO ABNORMAL [None]
  - LACTIC ACIDOSIS [None]
  - RENAL FAILURE ACUTE [None]
  - TACHYPNOEA [None]
